FAERS Safety Report 19715585 (Version 1)
Quarter: 2021Q3

REPORT INFORMATION
  Report Type: Spontaneous
  Country: PT (occurrence: PT)
  Receive Date: 20210818
  Receipt Date: 20210818
  Transmission Date: 20211014
  Serious: Yes (Hospitalization)
  Sender: FDA-Public Use
  Company Number: PT-ENDO PHARMACEUTICALS INC-2021-011086

PATIENT
  Age: 52 Year
  Sex: Female

DRUGS (1)
  1. AMOXICILLIN. [Suspect]
     Active Substance: AMOXICILLIN
     Indication: ORAL INFECTION
     Dosage: 1 G, UNKNOWN
     Route: 065

REACTIONS (2)
  - Intestinal ischaemia [Recovered/Resolved]
  - Anaphylactic reaction [Recovered/Resolved]
